FAERS Safety Report 10736328 (Version 1)
Quarter: 2015Q1

REPORT INFORMATION
  Report Type: Spontaneous
  Country: US (occurrence: None)
  Receive Date: 20150122
  Receipt Date: 20150122
  Transmission Date: 20150721
  Serious: Yes (Disabling)
  Sender: FDA-Public Use
  Company Number: None

PATIENT
  Age: 4 Year
  Sex: Male

DRUGS (1)
  1. MIRALAX [Suspect]
     Active Substance: POLYETHYLENE GLYCOL 3350
     Indication: CONSTIPATION
     Dosage: 3 TBSP ONCE DAILY TAKEN BY MOUTH
     Route: 048

REACTIONS (5)
  - Fatigue [None]
  - Dark circles under eyes [None]
  - Petechiae [None]
  - Asthenia [None]
  - Malnutrition [None]

NARRATIVE: CASE EVENT DATE: 20101003
